FAERS Safety Report 5044344-1 (Version None)
Quarter: 2006Q3

REPORT INFORMATION
  Report Type: 
  Country: None (occurrence: None)
  Receive Date: 20060706
  Receipt Date: 20060626
  Transmission Date: 20061208
  Serious: Yes (Hospitalization)
  Sender: FDA-Public Use
  Company Number: 2006SE03566

PATIENT
  Age: 26211 Day
  Sex: Female
  Weight: 51 kg

DRUGS (19)
  1. BLOPRESS TABLETS 4 [Suspect]
     Indication: HYPERTENSION
     Route: 048
     Dates: start: 20050501, end: 20060612
  2. CALTAN [Concomitant]
     Route: 048
  3. ALLEGRA [Concomitant]
     Route: 048
     Dates: start: 20060526, end: 20060606
  4. OMEPRAL [Concomitant]
     Route: 048
  5. DEPAS [Concomitant]
     Route: 048
  6. ALLOID G [Concomitant]
     Indication: GASTRIC ULCER
     Route: 048
     Dates: start: 20060602
  7. GASTROM [Concomitant]
     Indication: GASTRIC ULCER
     Route: 048
     Dates: start: 20060602
  8. LASIX [Concomitant]
     Route: 048
  9. GLAKAY [Concomitant]
     Route: 048
  10. THYRADIN S [Concomitant]
     Route: 048
  11. PREDONINE [Concomitant]
     Route: 048
  12. CINAL [Concomitant]
     Route: 048
  13. POSTERISAN [Concomitant]
     Route: 048
  14. LAXOBERON [Concomitant]
     Dosage: AS NEEDED
     Route: 048
  15. CLINORIL [Concomitant]
     Indication: BACK PAIN
     Dosage: AS NEEDED
     Route: 048
     Dates: start: 20060602
  16. VOLTAREN [Concomitant]
     Indication: BACK PAIN
     Route: 054
     Dates: start: 20060602
  17. EPOGEN [Concomitant]
     Route: 042
  18. BLUTAL [Concomitant]
     Route: 042
  19. HEPARIN [Concomitant]
     Route: 065

REACTIONS (1)
  - ANAPHYLACTOID REACTION [None]
